FAERS Safety Report 16774425 (Version 1)
Quarter: 2019Q3

REPORT INFORMATION
  Report Type: Spontaneous
  Country: SE (occurrence: SE)
  Receive Date: 20190905
  Receipt Date: 20190905
  Transmission Date: 20191005
  Serious: Yes (Hospitalization)
  Sender: FDA-Public Use
  Company Number: SE-TEVA-2019-SE-1101058

PATIENT
  Age: 88 Year
  Sex: Female

DRUGS (10)
  1. FURIX [Concomitant]
  2. NOVO MIX 30 [Concomitant]
  3. ENALAPRIL [Suspect]
     Active Substance: ENALAPRIL
     Dates: end: 20190728
  4. DIBEN DRINK [Concomitant]
  5. METOPROLOL. [Concomitant]
     Active Substance: METOPROLOL
  6. HYDROCHLOROTHIAZIDE. [Suspect]
     Active Substance: HYDROCHLOROTHIAZIDE
     Dates: end: 20190728
  7. ALVEDON [Concomitant]
     Active Substance: ACETAMINOPHEN
     Dosage: VB
  8. NOVORAPID [Concomitant]
     Active Substance: INSULIN ASPART
     Dosage: VB
  9. ELIQUIS [Concomitant]
     Active Substance: APIXABAN
  10. CANODERM [Concomitant]
     Active Substance: UREA

REACTIONS (2)
  - Acute kidney injury [Recovering/Resolving]
  - Hyponatraemia [Recovering/Resolving]

NARRATIVE: CASE EVENT DATE: 201907
